FAERS Safety Report 9240767 (Version 1)
Quarter: 2013Q1

REPORT INFORMATION
  Report Type: Spontaneous
  Country: US (occurrence: None)
  Receive Date: 20121120
  Receipt Date: 20121120
  Transmission Date: 20140127
  Serious: No
  Sender: FDA-Public Use
  Company Number: 1000037381

PATIENT
  Age: 75 Year
  Sex: Female

DRUGS (8)
  1. VIIBRYD (VILAZODONE) (10 MILLIGRAM TABLETS) [Suspect]
     Indication: ANXIETY
     Dosage: 10MG (10 MG, 1 IN 1 D), ORAL
     Route: 048
     Dates: start: 20120718
  2. NEXIUM [Concomitant]
  3. DIGOXIN (DIGOXIN) [Concomitant]
  4. XARELTO (RIVAROXABAN) [Concomitant]
  5. LIPITOR (ATORVASTATIN CALCIUM) [Concomitant]
  6. KLOR-CON (POTASSIUM CHLORIDE) [Concomitant]
  7. LOVAZA (OMEGA-3-ACID ETHYL ESTER) [Concomitant]
  8. BENICAR (OLMESARTAN MEDOXOMIL) [Concomitant]

REACTIONS (2)
  - Insomnia [None]
  - Nausea [None]
